FAERS Safety Report 12234160 (Version 2)
Quarter: 2016Q2

REPORT INFORMATION
  Report Type: Spontaneous
  Country: US (occurrence: US)
  Receive Date: 20160404
  Receipt Date: 20160609
  Transmission Date: 20160815
  Serious: No
  Sender: FDA-Public Use
  Company Number: US-PFIZER INC-2016177768

PATIENT
  Age: 70 Year
  Sex: Male
  Weight: 113.4 kg

DRUGS (1)
  1. LIPITOR [Suspect]
     Active Substance: ATORVASTATIN CALCIUM
     Indication: LIPIDS ABNORMAL
     Dosage: 10 MG, 1X/DAY
     Dates: start: 2004

REACTIONS (1)
  - Blood cholesterol decreased [Unknown]
